FAERS Safety Report 5284434-1 (Version None)
Quarter: 2007Q1

REPORT INFORMATION
  Report Type: 
  Country: None (occurrence: None)
  Receive Date: 20070330
  Receipt Date: 20070330
  Transmission Date: 20070707
  Serious: Yes (Hospitalization)
  Sender: FDA-Public Use
  Company Number: None

PATIENT
  Age: 89 Year
  Sex: Male
  Weight: 70.7611 kg

DRUGS (22)
  1. DONEPEZIL HCL [Suspect]
     Indication: DEMENTIA ALZHEIMER'S TYPE
     Dosage: 5 MG DAILY PO
     Route: 048
     Dates: start: 20070201, end: 20070309
  2. ARIPIPRAZOLE 10 MG [Suspect]
     Indication: DEMENTIA ALZHEIMER'S TYPE
     Dosage: 10 MG DAILY PO
     Route: 048
     Dates: start: 20070122, end: 20070309
  3. ALLOPURINOL [Concomitant]
  4. ARIPIPRAZOLE [Concomitant]
  5. ASPIRIN [Concomitant]
  6. CLOPIDOGREL [Concomitant]
  7. COLCHICINE [Concomitant]
  8. FELODIPINE [Concomitant]
  9. FLUNISOLIDE [Concomitant]
  10. FUROSEMIDE [Concomitant]
  11. HYDRALAZINE HCL [Concomitant]
  12. IPRATROPIUM BROMIDE [Concomitant]
  13. ISOSORBIDE [Concomitant]
  14. LORATADINE [Concomitant]
  15. LOSARTAN POSTASSIUM [Concomitant]
  16. METOPROLOL SUCCINATE [Concomitant]
  17. NAPROXEN [Concomitant]
  18. NIFEDIEPINE [Concomitant]
  19. NITROGLYCERIN [Concomitant]
  20. OMEPRAZOLE [Concomitant]
  21. POTASSIUM CHLORIDE [Concomitant]
  22. SIMVASTATIN [Concomitant]

REACTIONS (15)
  - ACTIVITIES OF DAILY LIVING IMPAIRED [None]
  - ANOREXIA [None]
  - BRADYKINESIA [None]
  - CONFUSIONAL STATE [None]
  - CONSTIPATION [None]
  - COUGH [None]
  - DELIRIUM [None]
  - DIARRHOEA [None]
  - FATIGUE [None]
  - FLUID INTAKE REDUCED [None]
  - HALLUCINATIONS, MIXED [None]
  - MOBILITY DECREASED [None]
  - MOVEMENT DISORDER [None]
  - ORAL INTAKE REDUCED [None]
  - URINE OUTPUT DECREASED [None]
